FAERS Safety Report 6636201-1 (Version None)
Quarter: 2010Q1

REPORT INFORMATION
  Report Type: 
  Country: None (occurrence: None)
  Receive Date: 20100310
  Receipt Date: 20100302
  Transmission Date: 20100710
  Serious: Yes (Other)
  Sender: FDA-Public Use
  Company Number: 2010SP013551

PATIENT
  Age: 68 Year
  Sex: Male

DRUGS (6)
  1. MIRTAZAPINE [Suspect]
     Indication: DEPRESSION
     Dosage: 15 MG;QD;PO
     Route: 048
     Dates: start: 20100126, end: 20100222
  2. MIRTAZAPINE [Suspect]
     Indication: INSOMNIA
     Dosage: 15 MG;QD;PO
     Route: 048
     Dates: start: 20100126, end: 20100222
  3. ZOLPIDEM TARTRATE (CON.) [Concomitant]
  4. NIFIDIPINE (CON.) [Concomitant]
  5. OLMESARTAN MEDOXOMIL (CON.) [Concomitant]
  6. LANSOPRAZOL (CON.) [Concomitant]

REACTIONS (2)
  - DIZZINESS [None]
  - LOSS OF CONSCIOUSNESS [None]
